FAERS Safety Report 13293795 (Version 3)
Quarter: 2018Q1

REPORT INFORMATION
  Report Type: Report from Study
  Country: US (occurrence: US)
  Receive Date: 20170303
  Receipt Date: 20180208
  Transmission Date: 20180508
  Serious: Yes (Other)
  Sender: FDA-Public Use
  Company Number: US-AMGEN-USASL2017029246

PATIENT
  Age: 57 Year
  Sex: Female

DRUGS (2)
  1. ENBREL [Suspect]
     Active Substance: ETANERCEPT
     Indication: PSORIATIC ARTHROPATHY
     Dosage: 50 MG, UNK
     Route: 065
  2. HUMIRA [Suspect]
     Active Substance: ADALIMUMAB
     Indication: PRODUCT USED FOR UNKNOWN INDICATION
     Dosage: UNK
     Route: 065

REACTIONS (13)
  - Spinal fusion acquired [Unknown]
  - Nausea [Unknown]
  - Gait disturbance [Unknown]
  - Depression [Unknown]
  - Decreased appetite [Unknown]
  - Dyslexia [Unknown]
  - Basal cell carcinoma [Unknown]
  - Intervertebral disc protrusion [Not Recovered/Not Resolved]
  - Surgery [Unknown]
  - Mobility decreased [Unknown]
  - Appendicitis [Unknown]
  - Nephrolithiasis [Not Recovered/Not Resolved]
  - Adverse event [Unknown]

NARRATIVE: CASE EVENT DATE: 2017
